FAERS Safety Report 8193256-3 (Version None)
Quarter: 2012Q1

REPORT INFORMATION
  Report Type: 
  Country: None (occurrence: None)
  Receive Date: 20120308
  Receipt Date: 20120223
  Transmission Date: 20120608
  Serious: Yes (Life-Threatening, Hospitalization)
  Sender: FDA-Public Use
  Company Number: GB-MYLANLABS-2012S1004178

PATIENT
  Age: 45 Year
  Sex: Male

DRUGS (1)
  1. AZATHIOPRINE [Suspect]
     Indication: ECZEMA
     Dates: start: 20120130, end: 20120131

REACTIONS (4)
  - HYPOTENSION [None]
  - RENAL IMPAIRMENT [None]
  - VOMITING [None]
  - DIARRHOEA [None]
